FAERS Safety Report 7039366-5 (Version None)
Quarter: 2010Q3

REPORT INFORMATION
  Report Type: 
  Country: None (occurrence: None)
  Receive Date: 20100913
  Receipt Date: 20100830
  Transmission Date: 20110219
  Serious: Yes (Other)
  Sender: FDA-Public Use
  Company Number: 200814053

PATIENT
  Age: 25 Year
  Sex: Male

DRUGS (2)
  1. MONONINE [Suspect]
     Indication: FACTOR IX DEFICIENCY
  2. BERININ P (FACTOR IX P BEHRING) [Suspect]
     Indication: FACTOR IX DEFICIENCY

REACTIONS (4)
  - ARTHRITIS [None]
  - EOSINOPHIL COUNT INCREASED [None]
  - FACTOR IX INHIBITION [None]
  - SERUM SICKNESS [None]
